FAERS Safety Report 18242935 (Version 1)
Quarter: 2020Q3

REPORT INFORMATION
  Report Type: Spontaneous
  Country: US (occurrence: US)
  Receive Date: 20200908
  Receipt Date: 20200908
  Transmission Date: 20201103
  Serious: No
  Sender: FDA-Public Use
  Company Number: None

PATIENT
  Age: 43 Year
  Sex: Female
  Weight: 117 kg

DRUGS (16)
  1. PROMETHAZINE [Concomitant]
     Active Substance: PROMETHAZINE HYDROCHLORIDE
     Dates: start: 20200905, end: 20200906
  2. PROCHLORPERAZINE. [Concomitant]
     Active Substance: PROCHLORPERAZINE
     Dates: start: 20200902, end: 20200902
  3. TOPIRAMATE. [Concomitant]
     Active Substance: TOPIRAMATE
     Dates: start: 20200902, end: 20200908
  4. POTASSIUM CHLORIDE. [Concomitant]
     Active Substance: POTASSIUM CHLORIDE
     Dates: start: 20200902, end: 20200902
  5. LEVOFLOXACIN. [Concomitant]
     Active Substance: LEVOFLOXACIN
     Dates: start: 20200903, end: 20200905
  6. FENTANYL. [Concomitant]
     Active Substance: FENTANYL
     Dates: start: 20200903, end: 20200908
  7. IOHEXOL [Concomitant]
     Active Substance: IOHEXOL
     Dates: start: 20200903, end: 20200903
  8. ENOXAPARIN [Concomitant]
     Active Substance: ENOXAPARIN
     Dates: start: 20200903, end: 20200908
  9. PANTOPRAZOLE [Concomitant]
     Active Substance: PANTOPRAZOLE
     Dates: start: 20200902, end: 20200908
  10. TRAMADOL. [Concomitant]
     Active Substance: TRAMADOL
     Dates: start: 20200904, end: 20200908
  11. SUMATRIPTAN. [Concomitant]
     Active Substance: SUMATRIPTAN
     Dates: start: 20200902, end: 20200902
  12. ONDANSETRON [Concomitant]
     Active Substance: ONDANSETRON
     Dates: start: 20200902, end: 20200908
  13. LOPERAMIDE [Concomitant]
     Active Substance: LOPERAMIDE
     Dates: start: 20200902, end: 20200908
  14. REMDESIVIR. [Suspect]
     Active Substance: REMDESIVIR
     Indication: COVID-19
     Dosage: ?          OTHER FREQUENCY:200MG?1ST DOSE 100;?
     Route: 042
     Dates: start: 20200903, end: 20200907
  15. DEXAMETHASONE. [Concomitant]
     Active Substance: DEXAMETHASONE
     Dates: start: 20200902, end: 20200905
  16. GABAPENTIN. [Concomitant]
     Active Substance: GABAPENTIN
     Dates: start: 20200902, end: 20200908

REACTIONS (1)
  - Alanine aminotransferase increased [None]

NARRATIVE: CASE EVENT DATE: 20200907
